FAERS Safety Report 14936099 (Version 2)
Quarter: 2018Q2

REPORT INFORMATION
  Report Type: Report from Study
  Country: None (occurrence: GB)
  Receive Date: 20180524
  Receipt Date: 20180529
  Transmission Date: 20180711
  Serious: Yes (Other)
  Sender: FDA-Public Use
  Company Number: GB-BAUSCH-BL-2018-014794

PATIENT
  Age: 77 Year
  Sex: Female

DRUGS (5)
  1. POMALIDOMIDE [Suspect]
     Active Substance: POMALIDOMIDE
     Route: 048
     Dates: start: 20150630, end: 20150630
  2. DEXAMETHASONE. [Suspect]
     Active Substance: DEXAMETHASONE
     Route: 065
     Dates: start: 20150623
  3. DEXAMETHASONE. [Suspect]
     Active Substance: DEXAMETHASONE
     Indication: PLASMA CELL MYELOMA
     Route: 065
     Dates: start: 20150609
  4. DEXAMETHASONE. [Suspect]
     Active Substance: DEXAMETHASONE
     Route: 065
     Dates: start: 20150602
  5. POMALIDOMIDE [Suspect]
     Active Substance: POMALIDOMIDE
     Indication: PLASMA CELL MYELOMA
     Route: 048
     Dates: start: 20150602, end: 20150622

REACTIONS (2)
  - Fatigue [Not Recovered/Not Resolved]
  - Neutrophil count decreased [Recovered/Resolved]

NARRATIVE: CASE EVENT DATE: 20150609
